FAERS Safety Report 7704824-4 (Version None)
Quarter: 2011Q3

REPORT INFORMATION
  Report Type: 
  Country: None (occurrence: None)
  Receive Date: 20110823
  Receipt Date: 20110816
  Transmission Date: 20111222
  Serious: Yes (Life-Threatening, Hospitalization)
  Sender: FDA-Public Use
  Company Number: IN-ABBOTT-11P-078-0846979-00

PATIENT
  Age: 20 Year
  Sex: Female

DRUGS (4)
  1. VALPROIC ACID [Suspect]
     Indication: EPILEPSY
  2. CARBAMAZEPINE [Concomitant]
     Indication: PRODUCT USED FOR UNKNOWN INDICATION
  3. LAMOTRIGINE [Suspect]
     Indication: EPILEPSY
  4. CARBAMAZEPINE [Concomitant]

REACTIONS (9)
  - ABDOMINAL PAIN [None]
  - SKIN LESION [None]
  - RASH VESICULAR [None]
  - BLISTER [None]
  - CONJUNCTIVAL HYPERAEMIA [None]
  - MOUTH ULCERATION [None]
  - TOXIC EPIDERMAL NECROLYSIS [None]
  - PAIN OF SKIN [None]
  - LIP OEDEMA [None]
